FAERS Safety Report 7934045-1 (Version None)
Quarter: 2011Q4

REPORT INFORMATION
  Report Type: 
  Country: None (occurrence: None)
  Receive Date: 20111122
  Receipt Date: 20111115
  Transmission Date: 20120403
  Serious: Yes (Hospitalization)
  Sender: FDA-Public Use
  Company Number: FR-UCBSA-045830

PATIENT
  Age: 81 Year
  Sex: Female

DRUGS (10)
  1. CLONAZEPAM [Concomitant]
     Indication: SOMNOLENCE
  2. KEPPRA [Suspect]
     Indication: GRAND MAL CONVULSION
     Route: 048
     Dates: start: 20110101
  3. UNSPECIFIED ANTI-HYPERTENSIVE DRUGS [Concomitant]
  4. PRIMPERAN TAB [Concomitant]
  5. DEPAKENE [Concomitant]
     Indication: SOMNOLENCE
  6. LAMICTAL [Suspect]
     Indication: GRAND MAL CONVULSION
     Route: 048
     Dates: start: 20111017, end: 20111031
  7. TANGANIL [Concomitant]
  8. KEPPRA [Suspect]
     Dates: start: 20110901
  9. DEPAKENE [Concomitant]
     Indication: GRAND MAL CONVULSION
  10. CLONAZEPAM [Concomitant]
     Indication: GRAND MAL CONVULSION

REACTIONS (1)
  - NEUTROPENIA [None]
